FAERS Safety Report 10154596 (Version 3)
Quarter: 2014Q2

REPORT INFORMATION
  Report Type: Spontaneous
  Country: US (occurrence: US)
  Receive Date: 20140506
  Receipt Date: 20140617
  Transmission Date: 20141212
  Serious: Yes (Other)
  Sender: FDA-Public Use
  Company Number: US-AMGEN-USASP2014031101

PATIENT
  Age: 66 Year
  Sex: Female
  Weight: 62.59 kg

DRUGS (17)
  1. PROLIA [Suspect]
     Indication: OSTEOPOROSIS POSTMENOPAUSAL
     Dosage: 60 MG, Q6MO
     Route: 058
  2. DETROL [Concomitant]
  3. GABAPENTIN [Concomitant]
     Dosage: 300 MG, BID
  4. FLUSH FREE NIACIN [Concomitant]
     Dosage: 2 DF, BID
  5. CALCIUM [Concomitant]
     Dosage: 600 MG, UNK
  6. VITAMIN D                          /00107901/ [Concomitant]
     Dosage: 2 DF, BID
  7. POTASSIUM [Concomitant]
     Dosage: 99 MG, UNK
  8. MAGNESIUM [Concomitant]
     Dosage: UNK UNK, QD
  9. SPIRIVA [Concomitant]
  10. LOSARTAN [Concomitant]
     Dosage: 100 MG, UNK
  11. FAMOTIDINE [Concomitant]
     Dosage: 20 MG, BID
  12. CYMBALTA [Concomitant]
     Dosage: 60 MG, QD
  13. MELOXICAM [Concomitant]
     Dosage: 15 MG, QD
  14. LORATADINE [Concomitant]
     Dosage: 10 MG, UNK
  15. METHOCARBAMOL [Concomitant]
     Dosage: 750 MG, UNK
  16. TRAMADOL                           /00599202/ [Concomitant]
     Dosage: 50 MG, TWO TABS TID
  17. HYDROCODONE [Concomitant]

REACTIONS (10)
  - Fall [Unknown]
  - Joint injury [Unknown]
  - Neck pain [Unknown]
  - Osteoarthritis [Unknown]
  - Intervertebral disc degeneration [Unknown]
  - Pain in jaw [Not Recovered/Not Resolved]
  - Back pain [Unknown]
  - Arthralgia [Unknown]
  - Myalgia [Unknown]
  - Pain in extremity [Unknown]
